FAERS Safety Report 5285451-8 (Version None)
Quarter: 2007Q1

REPORT INFORMATION
  Report Type: 
  Country: None (occurrence: None)
  Receive Date: 20070328
  Receipt Date: 20070321
  Transmission Date: 20070707
  Serious: Yes (Other)
  Sender: FDA-Public Use
  Company Number: 2007SP005109

PATIENT
  Age: 7 Year
  Sex: Male

DRUGS (1)
  1. NOXAFIL [Suspect]
     Indication: BRONCHOPULMONARY ASPERGILLOSIS
     Dosage: SEE IMAGE
     Route: 048
     Dates: start: 20070309, end: 20070310

REACTIONS (3)
  - ASPERGILLOSIS [None]
  - LIPASE INCREASED [None]
  - PULMONARY MASS [None]
